FAERS Safety Report 6729710-8 (Version None)
Quarter: 2010Q2

REPORT INFORMATION
  Report Type: 
  Country: None (occurrence: None)
  Receive Date: 20100512
  Receipt Date: 20100504
  Transmission Date: 20101027
  Serious: Yes (Hospitalization, Other)
  Sender: FDA-Public Use
  Company Number: TRP_06953_2010

PATIENT
  Age: 52 Year
  Sex: Male

DRUGS (1)
  1. INTERFERON ALFA [Suspect]
     Indication: HEPATITIS C
     Dosage: (DF)
     Dates: start: 20050901, end: 20051101

REACTIONS (7)
  - ALCOHOLISM [None]
  - CRYOGLOBULINAEMIA [None]
  - DIABETES MELLITUS [None]
  - HYPERTENSION [None]
  - INTERCAPILLARY GLOMERULOSCLEROSIS [None]
  - RENAL AND LIVER TRANSPLANT [None]
  - THERAPEUTIC RESPONSE DECREASED [None]
